FAERS Safety Report 11104941 (Version 2)
Quarter: 2015Q3

REPORT INFORMATION
  Report Type: Spontaneous
  Country: US (occurrence: US)
  Receive Date: 20150511
  Receipt Date: 20150701
  Transmission Date: 20151125
  Serious: Yes (Death, Hospitalization)
  Sender: FDA-Public Use
  Company Number: US-ACTELION-A-US2015-117836

PATIENT
  Age: 62 Year
  Sex: Male

DRUGS (8)
  1. BUDESONIDE. [Concomitant]
     Active Substance: BUDESONIDE
     Dosage: 2 PUFF, BID
  2. FUROSEMIDE. [Concomitant]
     Active Substance: FUROSEMIDE
     Dosage: UNK UNK, QD
  3. METFORMIN [Concomitant]
     Active Substance: METFORMIN HYDROCHLORIDE
  4. OMEPRAZOLE. [Concomitant]
     Active Substance: OMEPRAZOLE
  5. POTASSIUM CHLORIDE. [Concomitant]
     Active Substance: POTASSIUM CHLORIDE
  6. DUONEB [Concomitant]
     Active Substance: ALBUTEROL SULFATE\IPRATROPIUM BROMIDE
  7. OPSUMIT [Suspect]
     Active Substance: MACITENTAN
     Indication: PULMONARY HYPERTENSION
     Dosage: 10 MG, QD
     Route: 048
  8. ASPIRIN. [Concomitant]
     Active Substance: ASPIRIN
     Dosage: UNK

REACTIONS (3)
  - Respiratory failure [Fatal]
  - Cardiac arrest [Fatal]
  - Cardiac failure congestive [Unknown]
